FAERS Safety Report 17122089 (Version 1)
Quarter: 2019Q4

REPORT INFORMATION
  Report Type: Spontaneous
  Country: US (occurrence: US)
  Receive Date: 20191113
  Receipt Date: 20191113
  Transmission Date: 20200122
  Serious: Yes (Other)
  Sender: FDA-Public Use
  Company Number: None

PATIENT
  Age: 62 Year
  Sex: Female
  Weight: 59.2 kg

DRUGS (1)
  1. OCREVUS [Suspect]
     Active Substance: OCRELIZUMAB
     Indication: MULTIPLE SCLEROSIS
     Dosage: ?          OTHER FREQUENCY:DAY 1 + DAY 15;?
     Route: 042
     Dates: start: 20190603, end: 20190701

REACTIONS (4)
  - Depression [None]
  - Eye swelling [None]
  - Macular pseudohole [None]
  - Fatigue [None]

NARRATIVE: CASE EVENT DATE: 20190903
